FAERS Safety Report 6260894-4 (Version None)
Quarter: 2009Q3

REPORT INFORMATION
  Report Type: 
  Country: None (occurrence: None)
  Receive Date: 20090707
  Receipt Date: 20090701
  Transmission Date: 20100115
  Serious: Yes (Disabling)
  Sender: FDA-Public Use
  Company Number: 2009008026

PATIENT
  Age: 79 Year
  Sex: Female

DRUGS (5)
  1. ACTIQ [Suspect]
     Dosage: BU
     Route: 002
  2. MIDAZOLAM HCL [Suspect]
  3. NEOSTIGMINE BROMIDE (NEOSTIGMINE BROMIDE) [Suspect]
  4. PROPOFOL [Suspect]
  5. ATRACURIUM BESYLATE [Suspect]

REACTIONS (2)
  - DYSKINESIA [None]
  - DYSTONIA [None]
